FAERS Safety Report 9479586 (Version 1)
Quarter: 2013Q3

REPORT INFORMATION
  Report Type: Report from Study
  Country: BR (occurrence: BR)
  Receive Date: 20130827
  Receipt Date: 20130827
  Transmission Date: 20140515
  Serious: Yes (Death, Hospitalization, Other)
  Sender: FDA-Public Use
  Company Number: PHHY2013BR090593

PATIENT
  Sex: Female
  Weight: 40 kg

DRUGS (2)
  1. SANDOSTATIN LAR [Suspect]
     Indication: NEUROENDOCRINE TUMOUR
     Dosage: UNK UKN, EVERY 28-29 DAYS
     Dates: start: 2006, end: 20130725
  2. ACLASTA [Concomitant]
     Dosage: UNK UKN, UNK

REACTIONS (10)
  - Cardiac failure [Fatal]
  - Poor peripheral circulation [Fatal]
  - Diabetes mellitus [Fatal]
  - Blood pressure abnormal [Fatal]
  - Pulmonary embolism [Recovered/Resolved]
  - General physical health deterioration [Unknown]
  - Malignant neoplasm progression [Fatal]
  - Uterine cancer [Unknown]
  - Fallopian tube cancer [Unknown]
  - Ovarian cancer [Unknown]
